FAERS Safety Report 8269673-X (Version None)
Quarter: 2012Q2

REPORT INFORMATION
  Report Type: 
  Country: None (occurrence: None)
  Receive Date: 20120405
  Receipt Date: 20120403
  Transmission Date: 20120825
  Serious: Yes (Other)
  Sender: FDA-Public Use
  Company Number: ADR-2011-11240

PATIENT
  Sex: Female

DRUGS (1)
  1. LIORESAL [Suspect]
     Indication: MUSCLE SPASTICITY
     Dosage: 120 MCG, DAILY, INTRATH
     Route: 037

REACTIONS (3)
  - INTRACRANIAL HYPOTENSION [None]
  - POST LUMBAR PUNCTURE SYNDROME [None]
  - COGNITIVE DISORDER [None]
